FAERS Safety Report 5419060-4 (Version None)
Quarter: 2007Q3

REPORT INFORMATION
  Report Type: 
  Country: None (occurrence: None)
  Receive Date: 20070820
  Receipt Date: 20070813
  Transmission Date: 20080115
  Serious: Yes (Other)
  Sender: FDA-Public Use
  Company Number: PHBS2007BR13518

PATIENT
  Age: 62 Year
  Sex: Female
  Weight: 67 kg

DRUGS (3)
  1. TRILEPTAL [Suspect]
     Indication: RADICULOPATHY
     Dosage: 300 MG/DAY
     Route: 048
     Dates: start: 20070801, end: 20070808
  2. XELODA [Concomitant]
     Indication: PROPHYLAXIS
     Dosage: 6 DF / D
     Route: 048
  3. HIGROTON [Concomitant]
     Indication: HYPERTENSION
     Dosage: UNK, PRN

REACTIONS (10)
  - BALANCE DISORDER [None]
  - CONFUSIONAL STATE [None]
  - DECREASED APPETITE [None]
  - FATIGUE [None]
  - HEADACHE [None]
  - MALAISE [None]
  - PAIN IN EXTREMITY [None]
  - SOMNOLENCE [None]
  - VISION BLURRED [None]
  - WEIGHT DECREASED [None]
